FAERS Safety Report 15196856 (Version 3)
Quarter: 2018Q3

REPORT INFORMATION
  Report Type: Spontaneous
  Country: TR (occurrence: TR)
  Receive Date: 20180725
  Receipt Date: 20180817
  Transmission Date: 20181010
  Serious: Yes (Death, Life-Threatening, Hospitalization)
  Sender: FDA-Public Use
  Company Number: TR-CELGENEUS-TUR-20180701483

PATIENT
  Age: 71 Year
  Sex: Male
  Weight: 72 kg

DRUGS (19)
  1. VENETOCLAX. [Concomitant]
     Active Substance: VENETOCLAX
     Indication: ACUTE MYELOID LEUKAEMIA
     Dosage: 100 MILLIGRAM
     Route: 048
     Dates: start: 20180407, end: 20180407
  2. VENETOCLAX. [Concomitant]
     Active Substance: VENETOCLAX
     Dosage: 400 MILLIGRAM
     Route: 048
     Dates: start: 20180705, end: 20180711
  3. ALLOPURINOL. [Concomitant]
     Active Substance: ALLOPURINOL
     Dosage: 300 MILLIGRAM
     Route: 048
     Dates: start: 20180604, end: 20180611
  4. VENETOCLAX. [Concomitant]
     Active Substance: VENETOCLAX
     Dosage: 400 MILLIGRAM
     Route: 048
     Dates: start: 20180409, end: 20180630
  5. NORMAL SALINE [Concomitant]
     Active Substance: SODIUM CHLORIDE
     Indication: PROPHYLAXIS
     Route: 041
     Dates: start: 20180409, end: 20180409
  6. ALLOPURINOL. [Concomitant]
     Active Substance: ALLOPURINOL
     Dosage: 300 MILLIGRAM
     Route: 048
     Dates: start: 20180507, end: 20180514
  7. NORMAL SALINE [Concomitant]
     Active Substance: SODIUM CHLORIDE
     Route: 041
     Dates: start: 20180710, end: 20180710
  8. PARTEMOL [Concomitant]
     Indication: PYREXIA
     Dosage: 10 MILLIGRAM
     Route: 041
     Dates: start: 20180617
  9. PROTECH [Concomitant]
     Dosage: 40 MILLIGRAM
     Route: 048
     Dates: start: 20180413, end: 20180414
  10. AZACITIDINE. [Suspect]
     Active Substance: AZACITIDINE
     Dosage: 75 MILLIGRAM/SQ. METER
     Route: 058
     Dates: start: 20180705, end: 20180711
  11. ALLOPURINOL. [Concomitant]
     Active Substance: ALLOPURINOL
     Indication: PROPHYLAXIS
     Dosage: 300 MILLIGRAM
     Route: 048
     Dates: start: 20180409, end: 20180414
  12. PROTECH [Concomitant]
     Indication: PROPHYLAXIS
     Dosage: 40 MILLIGRAM
     Route: 048
     Dates: start: 20180409, end: 20180411
  13. PROTECH [Concomitant]
     Dosage: 40 MILLIGRAM
     Route: 048
     Dates: start: 20180701, end: 20180712
  14. PROTECH [Concomitant]
     Indication: PROPHYLAXIS
     Dosage: 80 MILLIGRAM
     Route: 048
     Dates: start: 20180407, end: 20180407
  15. PROTECH [Concomitant]
     Dosage: 40 MILLIGRAM
     Route: 048
     Dates: start: 20180507, end: 20180514
  16. PROTECH [Concomitant]
     Dosage: 40 MILLIGRAM
     Route: 048
     Dates: start: 20180604, end: 20180611
  17. AZACITIDINE. [Suspect]
     Active Substance: AZACITIDINE
     Indication: ACUTE MYELOID LEUKAEMIA
     Dosage: 75 MILLIGRAM/SQ. METER
     Route: 058
     Dates: start: 20180407, end: 20180610
  18. VENETOCLAX. [Concomitant]
     Active Substance: VENETOCLAX
     Dosage: 200 MILLIGRAM
     Route: 048
     Dates: start: 20180408, end: 20180408
  19. NORMAL SALINE [Concomitant]
     Active Substance: SODIUM CHLORIDE
     Route: 041
     Dates: start: 20180507, end: 20180508

REACTIONS (4)
  - Cardiac arrest [Fatal]
  - Sepsis [Unknown]
  - Febrile neutropenia [Recovered/Resolved]
  - Rectal abscess [Unknown]

NARRATIVE: CASE EVENT DATE: 20180701
